FAERS Safety Report 9221951 (Version 2)
Quarter: 2013Q4

REPORT INFORMATION
  Report Type: Spontaneous
  Country: US (occurrence: US)
  Receive Date: 20130410
  Receipt Date: 20131120
  Transmission Date: 20140711
  Serious: No
  Sender: FDA-Public Use
  Company Number: US-PFIZER INC-2013109792

PATIENT
  Age: 83 Year
  Sex: Female
  Weight: 65.76 kg

DRUGS (3)
  1. ADVIL CONGESTION RELIEF [Suspect]
     Indication: NASOPHARYNGITIS
     Dosage: UNK, ONCE DAILY
     Route: 048
  2. ADVIL CONGESTION RELIEF [Suspect]
     Dosage: UNK, TWO TIMES A DAY
     Route: 048
     Dates: start: 20130404
  3. ANACIN [Suspect]
     Indication: ARTHRITIS
     Dosage: TWO 400 MG TABLETS, DAILY
     Route: 048

REACTIONS (4)
  - Overdose [Unknown]
  - Somnolence [Recovered/Resolved]
  - Malaise [Recovered/Resolved]
  - Dizziness [Unknown]
